FAERS Safety Report 7327777-X (Version None)
Quarter: 2011Q1

REPORT INFORMATION
  Report Type: 
  Country: None (occurrence: None)
  Receive Date: 20110303
  Receipt Date: 20110117
  Transmission Date: 20110831
  Serious: Yes (Hospitalization)
  Sender: FDA-Public Use
  Company Number: US-JNJFOC-20110204716

PATIENT
  Age: 70 Year
  Sex: Female

DRUGS (2)
  1. LITHIUM CARBONATE [Interacting]
     Indication: BIPOLAR I DISORDER
     Dosage: SERUM LITHIUM PEAK LEVEL: 0.98 MEQ/L
     Route: 065
  2. HALOPERIDOL [Suspect]
     Indication: BIPOLAR I DISORDER
     Route: 065

REACTIONS (5)
  - EXTRAPYRAMIDAL DISORDER [None]
  - ATAXIA [None]
  - NEUROTOXICITY [None]
  - DELIRIUM [None]
  - DRUG INTERACTION [None]
